FAERS Safety Report 18108895 (Version 7)
Quarter: 2021Q1

REPORT INFORMATION
  Report Type: Spontaneous
  Country: US (occurrence: US)
  Receive Date: 20200804
  Receipt Date: 20210105
  Transmission Date: 20210419
  Serious: Yes (Hospitalization, Other)
  Sender: FDA-Public Use
  Company Number: US-PFIZER INC-2020292105

PATIENT
  Age: 65 Year
  Sex: Female

DRUGS (3)
  1. XELJANZ [Suspect]
     Active Substance: TOFACITINIB CITRATE
     Dosage: 10 MG, 2X/DAY
     Route: 048
     Dates: start: 202004
  2. XELJANZ [Suspect]
     Active Substance: TOFACITINIB CITRATE
     Indication: RHEUMATOID ARTHRITIS
     Dosage: 5 MG, 2X/DAY
     Route: 048
     Dates: start: 201904, end: 202008
  3. XELJANZ [Suspect]
     Active Substance: TOFACITINIB CITRATE
     Dosage: 5 MG, 2X/DAY
     Route: 048
     Dates: start: 20201006

REACTIONS (34)
  - Intestinal obstruction [Unknown]
  - Anxiety [Unknown]
  - Pain [Unknown]
  - Hypertension [Recovering/Resolving]
  - SLE arthritis [Unknown]
  - Loss of consciousness [Unknown]
  - Back disorder [Unknown]
  - Blood urine present [Unknown]
  - Rheumatoid arthritis [Unknown]
  - Drug ineffective [Unknown]
  - Stress [Unknown]
  - Hyperhidrosis [Unknown]
  - Movement disorder [Unknown]
  - Arthropathy [Unknown]
  - Tooth infection [Unknown]
  - Insomnia [Unknown]
  - Cough [Unknown]
  - Pollakiuria [Unknown]
  - Renal cancer [Unknown]
  - Fibromyalgia [Unknown]
  - Arthralgia [Unknown]
  - Mobility decreased [Unknown]
  - Feeling abnormal [Unknown]
  - Eye swelling [Recovering/Resolving]
  - Urinary tract infection [Unknown]
  - Renal cyst [Unknown]
  - Nephrolithiasis [Unknown]
  - Joint swelling [Unknown]
  - Sensitivity to weather change [Unknown]
  - Loose tooth [Unknown]
  - Dysstasia [Unknown]
  - Swelling face [Recovering/Resolving]
  - Fatigue [Unknown]
  - Pyrexia [Recovering/Resolving]

NARRATIVE: CASE EVENT DATE: 2020
